FAERS Safety Report 19806770 (Version 1)
Quarter: 2021Q3

REPORT INFORMATION
  Report Type: Spontaneous
  Country: US (occurrence: US)
  Receive Date: 20210908
  Receipt Date: 20210908
  Transmission Date: 20211014
  Serious: Yes (Other)
  Sender: FDA-Public Use
  Company Number: US-AMERICAN REGENT INC-2020002297

PATIENT
  Age: 3 Decade
  Sex: Female

DRUGS (1)
  1. INJECTAFER [Suspect]
     Active Substance: FERRIC CARBOXYMALTOSE
     Indication: HAEMOGLOBIN DECREASED
     Dosage: UNK
     Route: 042

REACTIONS (1)
  - Rash [Recovered/Resolved]
